FAERS Safety Report 6303186-7 (Version None)
Quarter: 2009Q3

REPORT INFORMATION
  Report Type: 
  Country: None (occurrence: None)
  Receive Date: 20090810
  Receipt Date: 20060310
  Transmission Date: 20100115
  Serious: No
  Sender: FDA-Public Use
  Company Number: A0577185A

PATIENT
  Age: 64 Year
  Sex: Female

DRUGS (3)
  1. PAROXETINE HCL [Suspect]
     Dosage: 40MG PER DAY
     Route: 048
  2. PAXIL CR [Suspect]
     Indication: DRUG USE FOR UNKNOWN INDICATION
     Route: 048
  3. PAXIL [Concomitant]
     Route: 048

REACTIONS (2)
  - ABASIA [None]
  - DRUG INEFFECTIVE [None]
